FAERS Safety Report 8311505-5 (Version None)
Quarter: 2012Q2

REPORT INFORMATION
  Report Type: 
  Country: None (occurrence: None)
  Receive Date: 20120423
  Receipt Date: 20120406
  Transmission Date: 20120825
  Serious: Yes (Other)
  Sender: FDA-Public Use
  Company Number: US-1191536

PATIENT
  Age: 96 Year
  Sex: Female
  Weight: 56.6996 kg

DRUGS (3)
  1. TRAVATAN [Suspect]
     Indication: OCULAR HYPERAEMIA
     Dosage: (ONCE A DAY OPHTHALMIC)
     Route: 047
     Dates: start: 20120201
  2. XALATAN [Concomitant]
  3. ANTIHYPERTENSIVES [Concomitant]

REACTIONS (2)
  - BLINDNESS [None]
  - DRUG INEFFECTIVE [None]
